FAERS Safety Report 19483365 (Version 1)
Quarter: 2021Q3

REPORT INFORMATION
  Report Type: Spontaneous
  Country: US (occurrence: US)
  Receive Date: 20210701
  Receipt Date: 20210701
  Transmission Date: 20211014
  Serious: No
  Sender: FDA-Public Use
  Company Number: US-ASTRAZENECA-2021A516897

PATIENT
  Age: 55 Year
  Sex: Female
  Weight: 81.5 kg

DRUGS (1)
  1. LYNPARZA [Suspect]
     Active Substance: OLAPARIB
     Indication: OVARIAN CANCER
     Route: 048
     Dates: start: 20210303, end: 20210422

REACTIONS (5)
  - Nausea [Not Recovered/Not Resolved]
  - Malaise [Unknown]
  - Ageusia [Unknown]
  - Product dose omission issue [Unknown]
  - Dysgeusia [Not Recovered/Not Resolved]

NARRATIVE: CASE EVENT DATE: 202103
